FAERS Safety Report 7370566-0 (Version None)
Quarter: 2011Q1

REPORT INFORMATION
  Report Type: 
  Country: None (occurrence: None)
  Receive Date: 20110323
  Receipt Date: 20110322
  Transmission Date: 20110831
  Serious: No
  Sender: FDA-Public Use
  Company Number: US-B.I. PHARMACEUTICALS,INC./RIDGEFIELD-2011-BP-05099BP

PATIENT
  Sex: Female

DRUGS (6)
  1. REMERON [Concomitant]
     Indication: INSOMNIA
     Route: 048
  2. METOPROLOL [Concomitant]
     Indication: HYPERTENSION
     Route: 048
  3. METOPROLOL [Concomitant]
     Indication: ATRIAL FIBRILLATION
  4. ZOLOFT [Concomitant]
     Indication: DEPRESSION
     Route: 048
  5. VALIUM [Concomitant]
     Indication: INSOMNIA
     Route: 048
  6. PRADAXA [Suspect]
     Indication: ATRIAL FIBRILLATION
     Dosage: 300 MG
     Route: 048
     Dates: start: 20110205

REACTIONS (4)
  - SOMNOLENCE [None]
  - ABDOMINAL PAIN UPPER [None]
  - DIARRHOEA [None]
  - DYSPEPSIA [None]
